FAERS Safety Report 11986870 (Version 1)
Quarter: 2016Q1

REPORT INFORMATION
  Report Type: Spontaneous
  Country: US (occurrence: US)
  Receive Date: 20160202
  Receipt Date: 20160202
  Transmission Date: 20160526
  Serious: No
  Sender: FDA-Public Use
  Company Number: US-UCBSA-2015003429

PATIENT
  Age: 2 Year
  Sex: Female

DRUGS (2)
  1. KEPPRA [Suspect]
     Active Substance: LEVETIRACETAM
     Dosage: DECREASED TO HALF OF THE PREVIOUS DOSE
  2. KEPPRA [Suspect]
     Active Substance: LEVETIRACETAM
     Indication: PRODUCT USED FOR UNKNOWN INDICATION
     Dosage: UNK

REACTIONS (6)
  - Withdrawal syndrome [Unknown]
  - Pyrexia [Unknown]
  - Aggression [Unknown]
  - Drug withdrawal convulsions [Unknown]
  - Poor quality sleep [Unknown]
  - Hypersomnia [Unknown]
